FAERS Safety Report 4458023-2 (Version None)
Quarter: 2004Q3

REPORT INFORMATION
  Report Type: 
  Country: None (occurrence: None)
  Receive Date: 20040922
  Receipt Date: 20040907
  Transmission Date: 20050211
  Serious: Yes (Hospitalization)
  Sender: FDA-Public Use
  Company Number: GBS040815451

PATIENT
  Age: 48 Year
  Sex: Female

DRUGS (1)
  1. FLUOXETINE [Suspect]
     Indication: STRESS SYMPTOMS
     Dosage: 20 MG DAY
     Dates: start: 20040721, end: 20040812

REACTIONS (10)
  - DYSPHAGIA [None]
  - EYE SWELLING [None]
  - FEELING ABNORMAL [None]
  - HYPERSENSITIVITY [None]
  - INSOMNIA [None]
  - MASS [None]
  - PARAESTHESIA [None]
  - PRURITUS [None]
  - RASH [None]
  - URTICARIA [None]
